FAERS Safety Report 8362573 (Version 2)
Quarter: 2012Q4

REPORT INFORMATION
  Report Type: Report from Study
  Country: ES (occurrence: ES)
  Receive Date: 20120130
  Receipt Date: 20121030
  Transmission Date: 20130627
  Serious: Yes (Hospitalization)
  Sender: FDA-Public Use
  Company Number: ES-CELGENEUS-144-50794-12011511

PATIENT
  Age: 82 Year
  Sex: Female
  Weight: 54 kg

DRUGS (13)
  1. VIDAZA [Suspect]
     Indication: MYELODYSPLASTIC SYNDROME
     Dosage: 111 Milligram
     Route: 065
     Dates: start: 20110921
  2. COZAAR PLUS [Concomitant]
     Indication: HYPERTENSION ARTERIAL
     Dosage: 50 Milligram
     Route: 048
  3. OMEPRAZOLE [Concomitant]
     Indication: GASTRIC ULCER PROPHYLAXIS
     Dosage: 20 Milligram
     Route: 048
  4. PARACETAMOL [Concomitant]
     Indication: PAIN
     Dosage: 1 Gram
     Route: 048
  5. BETAHISTINE [Concomitant]
     Indication: DIZZINESS
     Route: 048
  6. GLIPIZIDE [Concomitant]
     Indication: HYPERTENSION ARTERIAL
     Route: 048
  7. DUPHALAC [Concomitant]
     Indication: CONSTIPATION
     Dosage: 10 Milligram
     Route: 048
     Dates: start: 20111104
  8. CALCIUM [Concomitant]
     Indication: ARTHROSIS MULTIPLE
     Route: 048
  9. PRIMPERAN [Concomitant]
     Indication: VOMITED
     Route: 048
  10. PRIMPERAN [Concomitant]
     Indication: NAUSEA
  11. KYTRIL [Concomitant]
     Indication: VOMITED
     Route: 048
  12. KYTRIL [Concomitant]
     Indication: NAUSEA
  13. CLEXANE [Concomitant]
     Indication: ANTICOAGULANT THERAPY
     Route: 058
     Dates: start: 20111226

REACTIONS (2)
  - Diverticulitis [Recovered/Resolved]
  - Sigmoiditis [Recovered/Resolved]
